FAERS Safety Report 6977048-6 (Version None)
Quarter: 2010Q3

REPORT INFORMATION
  Report Type: 
  Country: None (occurrence: None)
  Receive Date: 20100910
  Receipt Date: 20100902
  Transmission Date: 20110219
  Serious: Yes (Death, Hospitalization)
  Sender: FDA-Public Use
  Company Number: US-ROCHE-725855

PATIENT
  Sex: Female
  Weight: 58.4 kg

DRUGS (8)
  1. BEVACIZUMAB [Suspect]
     Indication: NEUROENDOCRINE CARCINOMA
     Dosage: FORM: NOT REPORTED
     Route: 042
     Dates: start: 20100728
  2. BLINDED PERTUZUMAB [Suspect]
     Indication: NEUROENDOCRINE CARCINOMA
     Dosage: FREQUENCY: EVERY 21 DAYS
     Route: 042
     Dates: start: 20100728
  3. OCTREOTIDE ACETATE [Suspect]
     Indication: NEUROENDOCRINE CARCINOMA
     Route: 030
     Dates: start: 20100728
  4. DECADRON [Concomitant]
     Dosage: FREQUENCY: DAY1
     Route: 042
     Dates: start: 20100728
  5. BENADRYL [Concomitant]
     Dosage: FREQUENCY: DAY 1
     Route: 042
     Dates: start: 20100728
  6. ZANTAC [Concomitant]
     Dosage: FREQUENCY: DAY 1
     Route: 042
     Dates: start: 20100728
  7. BENTYL [Concomitant]
     Dosage: FREQUENCY: AS NECESSARY
     Route: 048
     Dates: start: 20100804
  8. TYLENOL [Concomitant]
     Dosage: FREQUENCY: DAY 1
     Route: 048
     Dates: start: 20100728

REACTIONS (1)
  - COLONIC OBSTRUCTION [None]
